FAERS Safety Report 17994212 (Version 1)
Quarter: 2020Q3

REPORT INFORMATION
  Report Type: Spontaneous
  Country: US (occurrence: US)
  Receive Date: 20200708
  Receipt Date: 20200708
  Transmission Date: 20201103
  Serious: Yes (Other)
  Sender: FDA-Public Use
  Company Number: US-COOPERSURGICAL, INC.-US-2020CPS001539

PATIENT
  Age: 40 Year
  Sex: Female
  Weight: 89.34 kg

DRUGS (2)
  1. PARAGARD T 380A [Suspect]
     Active Substance: COPPER
     Indication: CONTRACEPTION
     Dosage: UNK
     Route: 015
     Dates: start: 20190409, end: 202006
  2. PARAGARD T 380A [Suspect]
     Active Substance: COPPER
     Indication: MENSTRUAL DISORDER

REACTIONS (3)
  - Sensation of foreign body [Recovered/Resolved]
  - Cervical cyst [Unknown]
  - Device expulsion [Recovered/Resolved]

NARRATIVE: CASE EVENT DATE: 20190524
